FAERS Safety Report 20095811 (Version 2)
Quarter: 2022Q1

REPORT INFORMATION
  Report Type: Spontaneous
  Country: AU (occurrence: AU)
  Receive Date: 20211122
  Receipt Date: 20220126
  Transmission Date: 20220423
  Serious: Yes (Hospitalization)
  Sender: FDA-Public Use
  Company Number: AU-NOVARTISPH-NVSC2021AU260955

PATIENT
  Sex: Male

DRUGS (9)
  1. ELTROMBOPAG [Suspect]
     Active Substance: ELTROMBOPAG
     Indication: Foetal exposure during pregnancy
     Dosage: MATERNAL DOSE: FOR 8 WEEKS WITH MAX. DOSE ESCALATION TO 75 MG, QD
     Route: 064
  2. PREDNISOLONE [Suspect]
     Active Substance: PREDNISOLONE
     Indication: Foetal exposure during pregnancy
     Dosage: MATERNAL DOSE: 1 MG/KG, QD
     Route: 064
  3. PREDNISOLONE [Suspect]
     Active Substance: PREDNISOLONE
     Dosage: MATERNAL DOSE: 50 MG, QD
     Route: 064
  4. HUMAN RHO(D) IMMUNE GLOBULIN [Suspect]
     Active Substance: HUMAN RHO(D) IMMUNE GLOBULIN
     Indication: Foetal exposure during pregnancy
     Dosage: MATERNAL DOSE: UNK
     Route: 064
  5. TRANEXAMIC ACID [Suspect]
     Active Substance: TRANEXAMIC ACID
     Indication: Foetal exposure during pregnancy
     Dosage: MATERNAL DOSE: UNK
     Route: 064
  6. TRANEXAMIC ACID [Suspect]
     Active Substance: TRANEXAMIC ACID
     Dosage: MATERNAL DOSE: 1G (4 TIMES A DAY)
     Route: 064
  7. ROMIPLOSTIM [Suspect]
     Active Substance: ROMIPLOSTIM
     Indication: Foetal exposure during pregnancy
     Dosage: MATERNAL DOSE: 3 UG/KG (WEEKLY)
     Route: 064
  8. ROMIPLOSTIM [Suspect]
     Active Substance: ROMIPLOSTIM
     Dosage: MATERNAL DOSE: 5 UG/KG (FOURTH DOSE)
     Route: 064
  9. METHYLPREDNISOLONE [Suspect]
     Active Substance: METHYLPREDNISOLONE
     Indication: Foetal exposure during pregnancy
     Dosage: MATERNAL DOSE: 1 MG/KG, QD
     Route: 064

REACTIONS (2)
  - Thrombocytopenia neonatal [Recovering/Resolving]
  - Foetal exposure during pregnancy [Unknown]
